FAERS Safety Report 12666823 (Version 1)
Quarter: 2016Q3

REPORT INFORMATION
  Report Type: Spontaneous
  Country: US (occurrence: US)
  Receive Date: 20160819
  Receipt Date: 20160819
  Transmission Date: 20161109
  Serious: Yes (Hospitalization, Other)
  Sender: FDA-Public Use
  Company Number: US-BAUSCH-BL-2016-019709

PATIENT
  Age: 55 Year
  Sex: Male

DRUGS (1)
  1. VENLAFAXINE [Suspect]
     Active Substance: VENLAFAXINE HYDROCHLORIDE
     Indication: PRODUCT USED FOR UNKNOWN INDICATION
     Dosage: AROUND 80 EXTENDED-RELEASE CAPSULES OF VENLAFAXINE, THE TOTAL DOSE BEING APPROXIMATELY 6000 MG
     Route: 048

REACTIONS (2)
  - Lactic acidosis [Recovered/Resolved]
  - Intentional overdose [Recovered/Resolved]
